FAERS Safety Report 20617348 (Version 2)
Quarter: 2022Q1

REPORT INFORMATION
  Report Type: Report from Study
  Country: ES (occurrence: ES)
  Receive Date: 20220321
  Receipt Date: 20220328
  Transmission Date: 20220424
  Serious: Yes (Hospitalization)
  Sender: FDA-Public Use
  Company Number: ES-PFIZER INC-202200412635

PATIENT
  Age: 12 Year
  Sex: Male
  Weight: 31.5 kg

DRUGS (9)
  1. IRINOTECAN HYDROCHLORIDE [Suspect]
     Active Substance: IRINOTECAN HYDROCHLORIDE
     Indication: Glioneuronal tumour
     Dosage: 58 MG, CYCLIC (DAYS 1 TO 5 OF A 21 DAY CYCLE)
     Route: 042
     Dates: start: 20211129
  2. IRINOTECAN HYDROCHLORIDE [Suspect]
     Active Substance: IRINOTECAN HYDROCHLORIDE
     Dosage: 58 MG, CYCLIC (DAYS 1 TO 5 OF A 21 DAY CYCLE)
     Route: 042
     Dates: start: 20211220, end: 20220107
  3. ABEMACICLIB [Suspect]
     Active Substance: ABEMACICLIB
     Indication: Glioneuronal tumour
     Dosage: 75 MG, 2X/DAY
     Route: 048
     Dates: start: 20211129, end: 20220110
  4. TEMOZOLOMIDE [Suspect]
     Active Substance: TEMOZOLOMIDE
     Indication: Glioneuronal tumour
     Dosage: 120 MG, CYCLIC (DAYS 1 TO 5 OF A 21 DAY CYCLE)
     Route: 048
     Dates: start: 20211129
  5. TEMOZOLOMIDE [Suspect]
     Active Substance: TEMOZOLOMIDE
     Dosage: 120 MG, CYCLIC (DAYS 1 TO 5 OF A 21 DAY CYCLE)
     Route: 048
     Dates: start: 20211129
  6. TEMOZOLOMIDE [Suspect]
     Active Substance: TEMOZOLOMIDE
     Dosage: 120 MG, CYCLIC (DAYS 1 TO 5 OF A 21 DAY CYCLE)
     Route: 048
     Dates: start: 20211220, end: 20220107
  7. LEVETIRACETAM [Concomitant]
     Active Substance: LEVETIRACETAM
     Dosage: UNK
     Dates: start: 20160415
  8. SULFAMETHOXAZOLE [Concomitant]
     Active Substance: SULFAMETHOXAZOLE
     Dosage: UNK
     Dates: start: 20211203
  9. TRIMETHOPRIM [Concomitant]
     Active Substance: TRIMETHOPRIM
     Dosage: UNK
     Dates: start: 20211203

REACTIONS (2)
  - Neoplasm progression [Recovered/Resolved with Sequelae]
  - Neoplasm progression [Recovering/Resolving]

NARRATIVE: CASE EVENT DATE: 20220202
